FAERS Safety Report 16703544 (Version 4)
Quarter: 2019Q3

REPORT INFORMATION
  Report Type: Spontaneous
  Country: DE (occurrence: DE)
  Receive Date: 20190814
  Receipt Date: 20190918
  Transmission Date: 20191004
  Serious: Yes (Hospitalization, Other)
  Sender: FDA-Public Use
  Company Number: DE-EMD SERONO-9109973

PATIENT
  Age: 36 Year
  Sex: Female

DRUGS (1)
  1. MAVENCLAD [Suspect]
     Active Substance: CLADRIBINE
     Indication: RELAPSING-REMITTING MULTIPLE SCLEROSIS
     Dosage: FIRST TREATMENT PHASE: A TOTAL OF 100 MG IN 10 DAYS
     Route: 048
     Dates: start: 20180615, end: 20180717

REACTIONS (3)
  - Ovarian necrosis [Unknown]
  - Waist circumference increased [Recovered/Resolved]
  - Borderline serous tumour of ovary [Recovered/Resolved]

NARRATIVE: CASE EVENT DATE: 201811
